FAERS Safety Report 12128153 (Version 1)
Quarter: 2016Q1

REPORT INFORMATION
  Report Type: Report from Study
  Country: US (occurrence: US)
  Receive Date: 20160229
  Receipt Date: 20160229
  Transmission Date: 20160526
  Serious: Yes (Death, Congenital Anomaly, Other)
  Sender: FDA-Public Use
  Company Number: US-MYLANLABS-2016M1008286

PATIENT

DRUGS (1)
  1. DEXAMETHASONE. [Suspect]
     Active Substance: DEXAMETHASONE
     Indication: PRODUCT USED FOR UNKNOWN INDICATION
     Dosage: 4 MG/DAY UPTO A CUMULATIVE DOSE OF 28 TO 532MG
     Route: 064

REACTIONS (4)
  - Foetal death [Fatal]
  - Heart block congenital [Unknown]
  - Hydrops foetalis [Unknown]
  - Foetal exposure during pregnancy [Recovered/Resolved]
